FAERS Safety Report 12327307 (Version 1)
Quarter: 2016Q2

REPORT INFORMATION
  Report Type: Spontaneous
  Country: CA (occurrence: CA)
  Receive Date: 20160503
  Receipt Date: 20160503
  Transmission Date: 20160815
  Serious: Yes (Other)
  Sender: FDA-Public Use
  Company Number: CA-AMGEN-CANSP2016053210

PATIENT
  Age: 62 Year
  Sex: Female

DRUGS (26)
  1. ACETAMINOPHEN. [Concomitant]
     Active Substance: ACETAMINOPHEN
     Dosage: UNK
  2. ASAPHEN [Concomitant]
     Active Substance: ASPIRIN
     Dosage: UNK
  3. CALCIUM [Concomitant]
     Active Substance: CALCIUM
     Dosage: UNK
  4. ESTRIOL [Concomitant]
     Active Substance: ESTRIOL
  5. FOLIC ACID. [Concomitant]
     Active Substance: FOLIC ACID
  6. PREGABALIN. [Concomitant]
     Active Substance: PREGABALIN
  7. MINERAL OIL LIGHT [Concomitant]
  8. ASPIRIN                            /00002701/ [Concomitant]
     Active Substance: ASPIRIN
     Dosage: UNK
  9. CELEBREX [Concomitant]
     Active Substance: CELECOXIB
     Dosage: UNK
  10. CALCIUM D PANTOTHENATE [Concomitant]
     Dosage: UNK
  11. NICOTINAMIDE [Concomitant]
     Active Substance: NIACINAMIDE
  12. ENBREL [Suspect]
     Active Substance: ETANERCEPT
     Indication: PRODUCT USED FOR UNKNOWN INDICATION
     Dosage: 50 MG, UNK
     Route: 058
  13. CETAPHIL ACNE PRINCIPLES [Concomitant]
     Dosage: UNK
  14. ERGOCALCIFEROL. [Concomitant]
     Active Substance: ERGOCALCIFEROL
  15. LEUCOVORIN                         /00566701/ [Concomitant]
     Active Substance: LEUCOVORIN
  16. PANTOLOC                           /01263204/ [Concomitant]
     Active Substance: PANTOPRAZOLE SODIUM
  17. PHENYLEPHRINE HYDROCHLORIDE. [Concomitant]
     Active Substance: PHENYLEPHRINE HYDROCHLORIDE
  18. LANOLIN. [Concomitant]
     Active Substance: LANOLIN
  19. METHOTREXATE SODIUM. [Suspect]
     Active Substance: METHOTREXATE SODIUM
     Indication: PRODUCT USED FOR UNKNOWN INDICATION
     Dosage: UNK
     Route: 065
  20. CAFFEINE. [Concomitant]
     Active Substance: CAFFEINE
     Dosage: UNK
  21. ELAVIL [Concomitant]
     Active Substance: AMITRIPTYLINE HYDROCHLORIDE
  22. FENOFIBRATE. [Concomitant]
     Active Substance: FENOFIBRATE
  23. PYRIDOXINE HYDROCHLORIDE. [Concomitant]
     Active Substance: PYRIDOXINE HYDROCHLORIDE
  24. RIBOFLAVIN [Concomitant]
     Active Substance: RIBOFLAVIN
  25. THIAMINE HYDROCHLORIDE. [Concomitant]
     Active Substance: THIAMINE HYDROCHLORIDE
  26. PETROLATUM. [Concomitant]
     Active Substance: PETROLATUM

REACTIONS (7)
  - Dry eye [Not Recovered/Not Resolved]
  - Fatigue [Not Recovered/Not Resolved]
  - Headache [Not Recovered/Not Resolved]
  - Osteoarthritis [Not Recovered/Not Resolved]
  - Diarrhoea [Not Recovered/Not Resolved]
  - Condition aggravated [Not Recovered/Not Resolved]
  - Faeces soft [Not Recovered/Not Resolved]
